FAERS Safety Report 10813975 (Version 4)
Quarter: 2015Q3

REPORT INFORMATION
  Report Type: Spontaneous
  Country: US (occurrence: US)
  Receive Date: 20150218
  Receipt Date: 20150708
  Transmission Date: 20151125
  Serious: Yes (Hospitalization, Other)
  Sender: FDA-Public Use
  Company Number: US-BAYER-2015-024456

PATIENT
  Age: 27 Year
  Sex: Female
  Weight: 86 kg

DRUGS (5)
  1. MIRENA [Suspect]
     Active Substance: LEVONORGESTREL
     Indication: CONTRACEPTION
     Dosage: 20 MCG/24HR, CONT
     Route: 015
     Dates: start: 20090825, end: 20101028
  2. ZINC [Concomitant]
     Active Substance: ZINC\ZINC CHLORIDE
     Dosage: 30 MG, 1 DAILY
  3. WAL PROFEN COLD AND SINUS [Concomitant]
     Active Substance: IBUPROFEN\PSEUDOEPHEDRINE HYDROCHLORIDE
     Dosage: 1000 UNITS 2 TABLETS DAILY
     Route: 048
  4. FISH OIL [Concomitant]
     Active Substance: FISH OIL
     Dosage: 1000 MG, 3 DAILY
     Route: 048
     Dates: start: 20101018
  5. ACIDOPHILUS [Concomitant]
     Active Substance: LACTOBACILLUS ACIDOPHILUS
     Dosage: 8 BILLION DAILY
     Route: 048

REACTIONS (17)
  - Scar [None]
  - Depressed mood [None]
  - Drug ineffective [None]
  - Depression [None]
  - Uterine perforation [None]
  - Haemorrhage in pregnancy [None]
  - Abortion of ectopic pregnancy [None]
  - Anxiety [None]
  - Device issue [None]
  - Abdominal pain [None]
  - Internal injury [None]
  - Ectopic pregnancy with contraceptive device [Recovered/Resolved]
  - Pelvic pain [None]
  - Emotional distress [None]
  - Injury [None]
  - Medical device discomfort [None]
  - Fear [None]

NARRATIVE: CASE EVENT DATE: 200909
